FAERS Safety Report 5121953-2 (Version None)
Quarter: 2006Q4

REPORT INFORMATION
  Report Type: 
  Country: None (occurrence: None)
  Receive Date: 20061003
  Receipt Date: 20060908
  Transmission Date: 20070319
  Serious: Yes (Other)
  Sender: FDA-Public Use
  Company Number: 2006-BP-10566RO

PATIENT
  Age: 33 Year
  Sex: Female
  Weight: 45 kg

DRUGS (2)
  1. FLUCONAZOLE [Suspect]
     Indication: CANDIDA PNEUMONIA
     Dosage: 200 MG/DAY, IV
     Route: 042
  2. DOMPERIDONE(DOMPERIDONE) [Suspect]
     Indication: IMPAIRED GASTRIC EMPTYING
     Dosage: 180 MG

REACTIONS (16)
  - BLOOD ALBUMIN DECREASED [None]
  - BLOOD CREATININE INCREASED [None]
  - BLOOD UREA INCREASED [None]
  - BRADYCARDIA [None]
  - CANDIDA PNEUMONIA [None]
  - CONDITION AGGRAVATED [None]
  - DIFFICULT TO WEAN FROM VENTILATOR [None]
  - DISEASE RECURRENCE [None]
  - ELECTROCARDIOGRAM QT CORRECTED INTERVAL PROLONGED [None]
  - HAEMODIALYSIS [None]
  - LUNG INFECTION PSEUDOMONAL [None]
  - POLYNEUROPATHY [None]
  - PSEUDOMONAL BACTERAEMIA [None]
  - RENAL IMPAIRMENT [None]
  - SYSTEMIC LUPUS ERYTHEMATOSUS [None]
  - TORSADE DE POINTES [None]
